FAERS Safety Report 22117056 (Version 1)
Quarter: 2023Q1

REPORT INFORMATION
  Report Type: Spontaneous
  Country: US (occurrence: US)
  Receive Date: 20230320
  Receipt Date: 20230320
  Transmission Date: 20230418
  Serious: No
  Sender: FDA-Public Use
  Company Number: US-SA-SAC20230316000492

PATIENT
  Age: 62 Year
  Sex: Female
  Weight: 66.2 kg

DRUGS (1)
  1. DUPIXENT [Suspect]
     Active Substance: DUPILUMAB
     Indication: Dermatitis atopic
     Dosage: 300 MG, QOW
     Route: 058
     Dates: start: 20221201

REACTIONS (6)
  - Sleep disorder [Not Recovered/Not Resolved]
  - Skin irritation [Not Recovered/Not Resolved]
  - Pruritus [Not Recovered/Not Resolved]
  - Dry skin [Not Recovered/Not Resolved]
  - Rash [Not Recovered/Not Resolved]
  - Therapeutic product effect incomplete [Unknown]

NARRATIVE: CASE EVENT DATE: 20230301
